FAERS Safety Report 15549590 (Version 1)
Quarter: 2018Q4

REPORT INFORMATION
  Report Type: Report from Study
  Country: CA (occurrence: CA)
  Receive Date: 20181025
  Receipt Date: 20181025
  Transmission Date: 20190205
  Serious: Yes (Other)
  Sender: FDA-Public Use
  Company Number: CA-NALPROPION PHARMACEUTICALS INC.-2018-005868

PATIENT

DRUGS (1)
  1. CONTRAVE [Suspect]
     Active Substance: BUPROPION HYDROCHLORIDE\NALTREXONE HYDROCHLORIDE
     Indication: WEIGHT CONTROL
     Dosage: 1 TAB, QD, 1 TABLET IN THE MORNING WITH BREAKFAST (1 DOSAGE FORMS,1 IN 1 D)
     Route: 048
     Dates: start: 20180905, end: 20180907

REACTIONS (7)
  - Malaise [Recovered/Resolved]
  - Therapy cessation [Not Recovered/Not Resolved]
  - Heart rate decreased [Recovered/Resolved]
  - Asthenia [Recovered/Resolved]
  - Impaired work ability [Recovered/Resolved]
  - Blood pressure decreased [Recovered/Resolved]
  - Tremor [Recovered/Resolved]

NARRATIVE: CASE EVENT DATE: 20180905
